FAERS Safety Report 9705956 (Version 3)
Quarter: 2014Q2

REPORT INFORMATION
  Report Type: Spontaneous
  Country: US (occurrence: US)
  Receive Date: 20131122
  Receipt Date: 20140612
  Transmission Date: 20141212
  Serious: Yes (Death, Hospitalization)
  Sender: FDA-Public Use
  Company Number: US-GLAXOSMITHKLINE-A1050266A

PATIENT
  Age: 48 Year
  Sex: Female

DRUGS (6)
  1. FLULAVAL TETRA 2013-2014 SEASON [Suspect]
     Indication: PROPHYLAXIS
     Route: 065
     Dates: start: 20131010, end: 20131010
  2. LAMICTAL [Suspect]
     Indication: CONVULSION
     Dosage: 100MG TWICE PER DAY
     Route: 048
     Dates: start: 2012
  3. GABAPENTIN [Concomitant]
  4. HERBAL MEDICATION [Concomitant]
  5. VITAMINS [Concomitant]
  6. CREAM [Concomitant]

REACTIONS (17)
  - Septic shock [Fatal]
  - Loss of consciousness [Unknown]
  - Haemorrhage [Unknown]
  - Renal failure [Unknown]
  - Brain death [Unknown]
  - Platelet count decreased [Unknown]
  - Enteritis infectious [Recovered/Resolved]
  - Respiration abnormal [Unknown]
  - Fluid retention [Unknown]
  - Swelling [Unknown]
  - Hypoaesthesia [Unknown]
  - Paraesthesia [Unknown]
  - Convulsion [Unknown]
  - Syncope [Unknown]
  - Coagulopathy [Unknown]
  - Feeling abnormal [Unknown]
  - Diarrhoea [Unknown]
